FAERS Safety Report 8894877 (Version 1)
Quarter: 2012Q4

REPORT INFORMATION
  Report Type: 
  Country: NL (occurrence: NL)
  Receive Date: 20121108
  Receipt Date: 20121108
  Transmission Date: 20130627
  Serious: Yes (Hospitalization)
  Sender: FDA-Public Use
  Company Number: NL-MYLANLABS-2012S1022419

PATIENT

DRUGS (3)
  1. MITOXANTRONE [Suspect]
     Route: 065
  2. METHOTREXATE [Suspect]
     Route: 065
  3. MERCAPTOPURINE [Suspect]
     Route: 065

REACTIONS (2)
  - Thrombocytopenia [Unknown]
  - Petechiae [Unknown]
